FAERS Safety Report 17428645 (Version 2)
Quarter: 2020Q1

REPORT INFORMATION
  Report Type: Report from Study
  Country: FR (occurrence: FR)
  Receive Date: 20200218
  Receipt Date: 20200305
  Transmission Date: 20200409
  Serious: Yes (Death, Hospitalization)
  Sender: FDA-Public Use
  Company Number: FR-ROCHE-2551001

PATIENT
  Age: 66 Year
  Sex: Male
  Weight: 72.5 kg

DRUGS (1)
  1. RITUXIMAB. [Suspect]
     Active Substance: RITUXIMAB
     Indication: PEMPHIGUS
     Route: 042

REACTIONS (3)
  - Pemphigus [Unknown]
  - Death [Fatal]
  - Mouth ulceration [Unknown]

NARRATIVE: CASE EVENT DATE: 20151125
